FAERS Safety Report 15186690 (Version 2)
Quarter: 2019Q1

REPORT INFORMATION
  Report Type: Report from Study
  Country: US (occurrence: US)
  Receive Date: 20180723
  Receipt Date: 20190130
  Transmission Date: 20190417
  Serious: No
  Sender: FDA-Public Use
  Company Number: US-EXELIXIS-CABO-18012067

PATIENT
  Sex: Male

DRUGS (7)
  1. DOCUSATE SOD [Concomitant]
  2. CABOMETYX [Suspect]
     Active Substance: CABOZANTINIB S-MALATE
     Indication: BENIGN PROSTATIC HYPERPLASIA
     Dosage: 60 MG, QD
     Route: 048
     Dates: start: 20180109
  3. NEXIUM [Concomitant]
     Active Substance: ESOMEPRAZOLE MAGNESIUM
  4. LIDOCAINE. [Concomitant]
     Active Substance: LIDOCAINE
  5. TAMSULOSIN HCL [Concomitant]
     Active Substance: TAMSULOSIN HYDROCHLORIDE
  6. ASPIRIN. [Concomitant]
     Active Substance: ASPIRIN
  7. PERCOCET [Concomitant]
     Active Substance: ACETAMINOPHEN\OXYCODONE HYDROCHLORIDE

REACTIONS (11)
  - Dysgeusia [Unknown]
  - Decreased appetite [Not Recovered/Not Resolved]
  - Pruritus [Recovered/Resolved]
  - Weight decreased [Not Recovered/Not Resolved]
  - Off label use [Unknown]
  - Gingival pain [Not Recovered/Not Resolved]
  - Fatigue [Unknown]
  - Glossodynia [Not Recovered/Not Resolved]
  - Constipation [Unknown]
  - Cancer pain [Unknown]
  - Blood pressure increased [Unknown]
